FAERS Safety Report 4571199-1 (Version None)
Quarter: 2005Q1

REPORT INFORMATION
  Report Type: 
  Country: None (occurrence: None)
  Receive Date: 20050202
  Receipt Date: 20050114
  Transmission Date: 20050727
  Serious: Yes (Other)
  Sender: FDA-Public Use
  Company Number: BRO-008292

PATIENT
  Age: 67 Year
  Sex: Female

DRUGS (3)
  1. IOPAMIRO-300 (BATCH #(S): [Suspect]
     Indication: ANGIOGRAM
     Dosage: 180 ML, IA
     Route: 014
  2. IOPAMIRO-300 (BATCH #(S): [Suspect]
     Indication: SUBARACHNOID HAEMORRHAGE
     Dosage: 180 ML, IA
     Route: 014
  3. NIMODIPINE [Concomitant]

REACTIONS (4)
  - CEREBRAL ARTERY OCCLUSION [None]
  - CEREBRAL INFARCTION [None]
  - HEMIPLEGIA [None]
  - VASCULAR PROCEDURE COMPLICATION [None]
